FAERS Safety Report 15451230 (Version 1)
Quarter: 2018Q4

REPORT INFORMATION
  Report Type: Report from Study
  Country: GB (occurrence: GB)
  Receive Date: 20181001
  Receipt Date: 20181001
  Transmission Date: 20190204
  Serious: No
  Sender: FDA-Public Use
  Company Number: GB-IPSEN BIOPHARMACEUTICALS, INC.-2018-11153

PATIENT
  Sex: Male

DRUGS (1)
  1. SOMATULINE AUTOGEL 90MG [Suspect]
     Active Substance: LANREOTIDE ACETATE
     Indication: PRODUCT USED FOR UNKNOWN INDICATION
     Route: 058

REACTIONS (3)
  - Fall [Unknown]
  - Chest pain [Unknown]
  - Joint injury [Unknown]
